FAERS Safety Report 8004421-X (Version None)
Quarter: 2011Q4

REPORT INFORMATION
  Report Type: 
  Country: None (occurrence: None)
  Receive Date: 20111221
  Receipt Date: 20111221
  Transmission Date: 20120403
  Serious: Yes (Hospitalization)
  Sender: FDA-Public Use
  Company Number: None

PATIENT
  Age: 42 Year
  Sex: Male
  Weight: 77.6 kg

DRUGS (1)
  1. PAZOPANIB [Suspect]
     Indication: LUNG NEOPLASM MALIGNANT
     Dosage: 800MG ORALLY DAILY
     Route: 048
     Dates: start: 20110621, end: 20111024

REACTIONS (1)
  - PERICARDIAL EFFUSION MALIGNANT [None]
